FAERS Safety Report 8426852-6 (Version None)
Quarter: 2012Q2

REPORT INFORMATION
  Report Type: 
  Country: None (occurrence: None)
  Receive Date: 20120611
  Receipt Date: 20120601
  Transmission Date: 20120825
  Serious: Yes (Hospitalization)
  Sender: FDA-Public Use
  Company Number: US-VERTEX PHARMACEUTICALS INC.-AE-2012-008360

PATIENT
  Sex: Female

DRUGS (3)
  1. PEGASYS AUTOINJECTOR [Concomitant]
     Indication: HEPATITIS C
     Route: 058
     Dates: start: 20120405, end: 20120505
  2. INCIVEK [Suspect]
     Indication: HEPATITIS C
     Route: 048
     Dates: start: 20120405, end: 20120510
  3. RIBAVIRIN [Concomitant]
     Indication: HEPATITIS C
     Route: 048
     Dates: start: 20120405, end: 20120510

REACTIONS (1)
  - RENAL FAILURE [None]
